FAERS Safety Report 10237842 (Version 1)
Quarter: 2014Q2

REPORT INFORMATION
  Report Type: Spontaneous
  Country: US (occurrence: None)
  Receive Date: 20140612
  Receipt Date: 20140612
  Transmission Date: 20141212
  Serious: Yes (Hospitalization)
  Sender: FDA-Public Use
  Company Number: None

PATIENT
  Age: 41 Year
  Sex: Female

DRUGS (10)
  1. HUMIRA 40 MG ABBVIE [Suspect]
     Indication: CROHN^S DISEASE
     Dosage: 40 MG EVERY 10 DAYS SUB Q
     Route: 058
     Dates: start: 20141214
  2. ATORVASTATIN [Concomitant]
  3. OXYCODONE [Concomitant]
  4. METHOCARBAMOL [Concomitant]
  5. TOPIRAMATE [Concomitant]
  6. LYRICA [Concomitant]
  7. OMEPRAZOLE [Concomitant]
  8. ROPINIROLE [Concomitant]
  9. LEVOFLOXACIN [Concomitant]
  10. PREDNISONE [Concomitant]

REACTIONS (3)
  - Burning sensation [None]
  - Pain [None]
  - Oedema peripheral [None]
